FAERS Safety Report 9996627 (Version 1)
Quarter: 2014Q1

REPORT INFORMATION
  Report Type: Spontaneous
  Country: US (occurrence: None)
  Receive Date: 20140304
  Receipt Date: 20140304
  Transmission Date: 20141002
  Serious: Yes (Hospitalization, Other)
  Sender: FDA-Public Use
  Company Number: RB-55669-2013

PATIENT
  Sex: Male

DRUGS (4)
  1. SUBOXONE 8 MG [Suspect]
     Indication: DRUG DEPENDENCE
     Route: 064
     Dates: start: 201011, end: 201103
  2. BUPRENORPHINE [Suspect]
     Indication: DRUG DEPENDENCE
     Route: 064
     Dates: start: 201103, end: 20110824
  3. NICOTINE (NONE) [Suspect]
     Indication: NICOTINE DEPENDENCE
     Dosage: DETAILS UNKNOWN: MOTHER SMOKED DAILY TRANSPLACENTAL, ?
     Route: 064
     Dates: start: 201011, end: 20110824
  4. MARIJUANA [Suspect]
     Indication: PRODUCT USED FOR UNKNOWN INDICATION
     Dosage: DETAILS UNKNOWN; USED DAILY BY MOTHER TRANSPLACENTAL
     Route: 064
     Dates: start: 201011, end: 20110824

REACTIONS (3)
  - Foetal exposure during pregnancy [None]
  - Drug withdrawal syndrome neonatal [None]
  - Exposure during breast feeding [None]
